FAERS Safety Report 8197925-0 (Version None)
Quarter: 2012Q1

REPORT INFORMATION
  Report Type: 
  Country: None (occurrence: None)
  Receive Date: 20120309
  Receipt Date: 20111129
  Transmission Date: 20120608
  Serious: No
  Sender: FDA-Public Use
  Company Number: US-AMGEN-USASP2011063363

PATIENT
  Sex: Female

DRUGS (2)
  1. XGEVA [Suspect]
     Indication: PRODUCT USED FOR UNKNOWN INDICATION
     Dates: start: 20111001
  2. FEMARA [Concomitant]

REACTIONS (2)
  - BLOOD PARATHYROID HORMONE INCREASED [None]
  - BLOOD CALCIUM DECREASED [None]
